FAERS Safety Report 21994217 (Version 2)
Quarter: 2024Q2

REPORT INFORMATION
  Report Type: Spontaneous
  Country: IT (occurrence: IT)
  Receive Date: 20230215
  Receipt Date: 20240427
  Transmission Date: 20240716
  Serious: Yes (Other)
  Sender: FDA-Public Use
  Company Number: None

PATIENT
  Age: 77 Year
  Sex: Female

DRUGS (12)
  1. METFORMIN [Suspect]
     Active Substance: METFORMIN HYDROCHLORIDE
     Indication: Type 2 diabetes mellitus
     Dosage: DECLARES INTAKE FROM 08/23/2022 TO 01/20/2023 WITH METFORMINA TEVA*50CPR 500MG: METFORMIN HYDROCH...
     Route: 048
     Dates: start: 20220823, end: 20230120
  2. AMITRIPTYLINE HYDROCHLORIDE [Concomitant]
     Active Substance: AMITRIPTYLINE HYDROCHLORIDE
     Indication: Migraine prophylaxis
     Dosage: DICHIARA LA CONTINUIT? IN DATA 28/07/2022 CON LAROXYL*OS GTT 20ML 40MG/ML: AMITRIPTILINA CLORIDRA...
     Route: 048
     Dates: start: 20220728
  3. AMITRIPTYLINE HYDROCHLORIDE [Concomitant]
     Active Substance: AMITRIPTYLINE HYDROCHLORIDE
     Indication: Migraine prophylaxis
     Dosage: DOSAGE TEXT: DECLARE THE CONTINUITY ON 28/07/2022 WITH LAROXYL*OS GTT 20ML 40MG/ML: AMITRIPTILINA...
     Route: 065
     Dates: start: 20220728
  4. DOXAZOSIN [Concomitant]
     Active Substance: DOXAZOSIN MESYLATE
     Indication: Essential hypertension
     Dosage: DOSAGE TEXT: DECLARE THE CONTINUITY ON 28/07/2022 WITH DEDRALEN*20CPR DOXAZOSIN MESILATE (PA) - D...
     Route: 065
     Dates: start: 20220728
  5. CLOPIDOGREL BISULFATE [Concomitant]
     Active Substance: CLOPIDOGREL BISULFATE
     Indication: Thrombosis prophylaxis
     Dosage: DECLARES CONTINUITY ON 08/18/2022 WITH CLOPIDOGREL ZEN*28CPR RIV: CLOPIDOGREL BESYLATE (PA)
     Route: 048
     Dates: start: 20220818
  6. ACETAMINOPHEN\CODEINE PHOSPHATE [Concomitant]
     Active Substance: ACETAMINOPHEN\CODEINE PHOSPHATE
     Indication: Pain
     Dosage: DOSAGE TEXT: DECLARE CONTINUITY ON 08/30/2022 WITH TACHIDOL*16CPR RIV 500MG+30MG: PARACETAMOL/COD...
     Dates: start: 20220830
  7. NEBIVOLOL HYDROCHLORIDE [Concomitant]
     Active Substance: NEBIVOLOL HYDROCHLORIDE
     Indication: Hypertensive heart disease
     Dosage: DOSAGE TEXT: DECLARE CONTINUITY ON 08/09/2022 WITH LOBIVON*28CPR 5MG: NEBIVOLOL HYDROCHLORIDE (PA...
     Route: 065
     Dates: start: 20220809
  8. OZEMPIC [Concomitant]
     Active Substance: SEMAGLUTIDE
     Indication: Type 2 diabetes mellitus
     Dosage: DOSAGE TEXT: DECLARE CONTINUITY ON 02/08/2022 WITH OZEMPIC*1PEN 0.5MG/D+4NEEDLES: SEMAGLUTIDE (PA...
     Route: 065
     Dates: start: 20220802
  9. ATORVASTATIN [Concomitant]
     Active Substance: ATORVASTATIN
     Indication: Dyslipidaemia
     Dosage: DOSAGE TEXT: DECLARE CONTINUITY ON 08/30/2022 WITH TORVAST*30CPR RIV ATORVASTATIN CALCIUM TRHYDRA...
     Route: 065
     Dates: start: 20220830
  10. TRESIBA [Concomitant]
     Active Substance: INSULIN DEGLUDEC
     Indication: Diabetes mellitus
     Dosage: DECLARES CONTINUITY ON 08/18/2022 WITH TRESIBA*FLEXT 5PEN 3ML 100U/ML: INSULIN DEGLUDEC SEMAGLUTI...
     Route: 058
     Dates: start: 20220818
  11. LORATADINE [Concomitant]
     Active Substance: LORATADINE
     Indication: Rhinitis allergic
     Dosage: DOSAGE TEXT: DECLARE CONTINUITY ON 23/08/2022 WITH FRISTAMIN*20CPR 10MG: LORATADINA (PA)- DOSAGE ...
     Route: 065
     Dates: start: 20220823
  12. IRBESARTAN [Suspect]
     Active Substance: IRBESARTAN
     Indication: Hypertensive heart disease
     Dosage: DOSAGE TEXT: DECLARES CONTINUITY ON 23/08/2022 WITH KARVEA*28CPR 300MG: IRBESARTAN (PA) - DOSAGE ...
     Route: 048
     Dates: start: 20220823

REACTIONS (1)
  - Renal failure [Recovering/Resolving]

NARRATIVE: CASE EVENT DATE: 20220907
